FAERS Safety Report 17674915 (Version 1)
Quarter: 2020Q2

REPORT INFORMATION
  Report Type: Spontaneous
  Country: US (occurrence: US)
  Receive Date: 20200416
  Receipt Date: 20200416
  Transmission Date: 20200714
  Serious: No
  Sender: FDA-Public Use
  Company Number: US-SA-2020SA095324

PATIENT
  Age: 41 Year
  Sex: Male

DRUGS (3)
  1. BUDESONIDE/FORMOTEROL FUMARATE [Suspect]
     Active Substance: BUDESONIDE\FORMOTEROL FUMARATE
     Dosage: 2 DF, BID PUFF
     Route: 065
     Dates: start: 20200409
  2. ALLEGRA ALLERGY [Suspect]
     Active Substance: FEXOFENADINE HYDROCHLORIDE
     Indication: ASTHMA
     Dosage: 1 DF, QD
     Route: 065
     Dates: start: 20200409, end: 20200410
  3. ALLEGRA ALLERGY [Suspect]
     Active Substance: FEXOFENADINE HYDROCHLORIDE
     Indication: HYPERSENSITIVITY

REACTIONS (4)
  - Swelling face [Unknown]
  - Hypersensitivity [Unknown]
  - Dyspnoea [Unknown]
  - Discomfort [Unknown]
